FAERS Safety Report 7124593-9 (Version None)
Quarter: 2010Q4

REPORT INFORMATION
  Report Type: 
  Country: None (occurrence: None)
  Receive Date: 20101123
  Receipt Date: 20101123
  Transmission Date: 20110411
  Serious: Yes (Life-Threatening, Hospitalization, Disabling, Other)
  Sender: FDA-Public Use
  Company Number: None

PATIENT
  Age: 35 Year
  Sex: Male
  Weight: 129.2752 kg

DRUGS (3)
  1. OXYCONTIN [Suspect]
     Indication: MULTIPLE SCLEROSIS
     Dosage: 80 MGS 3 X A DAY PO
     Route: 048
     Dates: start: 20100922, end: 20100930
  2. OXYCONTIN [Suspect]
     Indication: PAIN MANAGEMENT
     Dosage: 80 MGS 3 X A DAY PO
     Route: 048
     Dates: start: 20100922, end: 20100930
  3. OXYCONTIN [Suspect]
     Indication: SYSTEMIC LUPUS ERYTHEMATOSUS
     Dosage: 80 MGS 3 X A DAY PO
     Route: 048
     Dates: start: 20100922, end: 20100930

REACTIONS (3)
  - DRUG INEFFECTIVE [None]
  - MALAISE [None]
  - PRODUCT FORMULATION ISSUE [None]
